FAERS Safety Report 24367771 (Version 1)
Quarter: 2024Q3

REPORT INFORMATION
  Report Type: Spontaneous
  Country: US (occurrence: None)
  Receive Date: 20240926
  Receipt Date: 20240926
  Transmission Date: 20241017
  Serious: No
  Sender: Public
  Company Number: None

PATIENT

DRUGS (1)
  1. REMODULIN [Suspect]
     Active Substance: TREPROSTINIL

REACTIONS (7)
  - Infusion site hypersensitivity [None]
  - Infusion site haemorrhage [None]
  - Infusion site infection [None]
  - Drug hypersensitivity [None]
  - Chest pain [None]
  - Device difficult to use [None]
  - Device issue [None]
